FAERS Safety Report 5653870-3 (Version None)
Quarter: 2008Q1

REPORT INFORMATION
  Report Type: 
  Country: None (occurrence: None)
  Receive Date: 20080306
  Receipt Date: 20080229
  Transmission Date: 20080703
  Serious: Yes (Other)
  Sender: FDA-Public Use
  Company Number: US-ASTRAZENECA-2008UW04083

PATIENT
  Age: 46 Year
  Sex: Female
  Weight: 88.5 kg

DRUGS (12)
  1. SEROQUEL [Suspect]
     Indication: MOOD SWINGS
     Dosage: 300 MG AM 600 MG HS
     Route: 048
     Dates: start: 20071001
  2. LYRICA [Interacting]
     Indication: FIBROMYALGIA
     Dates: start: 20071001
  3. LYRICA [Interacting]
     Indication: NEURALGIA
     Dates: start: 20071001
  4. LYRICA [Interacting]
     Dates: start: 20070101
  5. LYRICA [Interacting]
     Dates: start: 20070101
  6. KLONOPIN [Interacting]
     Indication: POST-TRAUMATIC STRESS DISORDER
     Dates: start: 19930101
  7. REMERON [Interacting]
     Indication: DEPRESSION
     Dates: start: 20010101
  8. CYMBALTA [Interacting]
     Indication: DEPRESSION
     Dates: start: 20070801
  9. AMBIEN [Interacting]
     Indication: INSOMNIA
     Dates: start: 20071201
  10. GLIPIZIDE [Concomitant]
     Indication: DIABETES MELLITUS
  11. LIPITOR [Concomitant]
  12. DETROL LA [Concomitant]

REACTIONS (2)
  - DRUG INTERACTION [None]
  - HALLUCINATION [None]
